FAERS Safety Report 5910408-0 (Version None)
Quarter: 2008Q4

REPORT INFORMATION
  Report Type: 
  Country: None (occurrence: None)
  Receive Date: 20081006
  Receipt Date: 20081006
  Transmission Date: 20090506
  Serious: Yes (Hospitalization)
  Sender: FDA-Public Use
  Company Number: None

PATIENT
  Age: 59 Year
  Sex: Male
  Weight: 113.3993 kg

DRUGS (1)
  1. OXAPROZIN [Suspect]
     Indication: EXOSTOSIS
     Dosage: 2 TABLETS ONCE DAILY PO  TAKEN ONE TIME
     Route: 048
     Dates: start: 20081003, end: 20081003

REACTIONS (1)
  - HYPERSENSITIVITY [None]
